FAERS Safety Report 6056258-9 (Version None)
Quarter: 2009Q1

REPORT INFORMATION
  Report Type: 
  Country: None (occurrence: None)
  Receive Date: 20090126
  Receipt Date: 20090126
  Transmission Date: 20090719
  Serious: No
  Sender: FDA-Public Use
  Company Number: None

PATIENT
  Age: 46 Year
  Sex: Male
  Weight: 117.5 kg

DRUGS (1)
  1. MORPHINE [Suspect]
     Indication: PAIN
     Dosage: 30 MG BID PO
     Route: 048
     Dates: start: 20081103, end: 20081113

REACTIONS (4)
  - DIZZINESS [None]
  - HYPOXIA [None]
  - LETHARGY [None]
  - RESPIRATORY DEPRESSION [None]
